FAERS Safety Report 16249876 (Version 1)
Quarter: 2019Q2

REPORT INFORMATION
  Report Type: Spontaneous
  Country: PT (occurrence: PT)
  Receive Date: 20190429
  Receipt Date: 20190429
  Transmission Date: 20190711
  Serious: Yes (Other)
  Sender: FDA-Public Use
  Company Number: PT-US WORLDMEDS, LLC-E2B_00002961

PATIENT
  Age: 79 Year
  Sex: Male

DRUGS (6)
  1. XADAGO [Suspect]
     Active Substance: SAFINAMIDE MESYLATE
  2. XARELTO [Concomitant]
     Active Substance: RIVAROXABAN
  3. SINEMET LP [Concomitant]
     Active Substance: CARBIDOPA\LEVODOPA
  4. XADAGO [Suspect]
     Active Substance: SAFINAMIDE MESYLATE
     Indication: PARKINSON^S DISEASE
     Dates: start: 2017, end: 20190130
  5. SINEMET [Concomitant]
     Active Substance: CARBIDOPA\LEVODOPA
  6. NEUPRO [Concomitant]
     Active Substance: ROTIGOTINE

REACTIONS (2)
  - Femur fracture [Unknown]
  - Skin cancer [Recovered/Resolved]

NARRATIVE: CASE EVENT DATE: 2018
